FAERS Safety Report 23960956 (Version 4)
Quarter: 2024Q3

REPORT INFORMATION
  Report Type: Spontaneous
  Country: HU (occurrence: HU)
  Receive Date: 20240611
  Receipt Date: 20240708
  Transmission Date: 20241016
  Serious: Yes (Death, Life-Threatening, Hospitalization, Other)
  Sender: PFIZER
  Company Number: HU-MLMSERVICE-20240530-PI083927-00270-1

PATIENT
  Age: 73 Year
  Sex: Male
  Weight: 83 kg

DRUGS (11)
  1. METHYLPREDNISOLONE [Suspect]
     Active Substance: METHYLPREDNISOLONE
     Dosage: 28 MG 4 DAYS
     Route: 048
  2. METHYLPREDNISOLONE [Suspect]
     Active Substance: METHYLPREDNISOLONE
     Dosage: 16 MG 11 DAYS
     Route: 048
  3. TIGECYCLINE [Suspect]
     Active Substance: TIGECYCLINE
     Indication: Antibiotic therapy
     Dosage: FREQ:12 H;2X 50 MG 6 DAYS
     Route: 042
  4. TIGECYCLINE [Suspect]
     Active Substance: TIGECYCLINE
     Dosage: FREQ:12 H;2X 50 MG 4 DAYS
     Route: 042
  5. TIGECYCLINE [Suspect]
     Active Substance: TIGECYCLINE
     Dosage: FREQ:24 H;1X 50 MG 6 DAYS
     Route: 042
  6. TICAGRELOR [Suspect]
     Active Substance: TICAGRELOR
     Dosage: FREQ:12 H;2X 90 MG 17 DAYS ORALLY
     Route: 048
  7. EVEROLIMUS [Suspect]
     Active Substance: EVEROLIMUS
     Dosage: 1X 0.25 MG TABLET 6 DAYS AFTER 0 MG 6 DAYS
     Route: 048
  8. EVEROLIMUS [Suspect]
     Active Substance: EVEROLIMUS
     Dosage: FREQ:12 H;2X 0.5 MG 7 DAYS
     Route: 048
  9. CLOPIDOGREL [Concomitant]
     Active Substance: CLOPIDOGREL BISULFATE
     Dosage: 2 DAYS ORALLY
     Route: 048
  10. HYDROCORTISONE [Concomitant]
     Active Substance: HYDROCORTISONE\HYDROCORTISONE ACETATE
     Dosage: 4 DAYS INTRAVENOUSLY.
     Route: 042
  11. MICAFUNGIN [Concomitant]
     Active Substance: MICAFUNGIN SODIUM
     Indication: Antibiotic therapy
     Dosage: UNK

REACTIONS (3)
  - Stenotrophomonas infection [Fatal]
  - Haemorrhagic pneumonia [Fatal]
  - Respiratory failure [Fatal]
